FAERS Safety Report 4469608-1 (Version None)
Quarter: 2004Q3

REPORT INFORMATION
  Report Type: 
  Country: None (occurrence: None)
  Receive Date: 20040920
  Receipt Date: 20040706
  Transmission Date: 20050211
  Serious: Yes (Other)
  Sender: FDA-Public Use
  Company Number: PHEH2004US06141

PATIENT
  Age: 70 Year
  Sex: Female

DRUGS (6)
  1. ZOMETA [Suspect]
     Indication: MULTIPLE MYELOMA
     Dosage: 4 MG EVERY 4 WEEKS, INTRAVENOUS
     Route: 042
     Dates: start: 20020101
  2. EPOGEN [Concomitant]
  3. DECADRON [Concomitant]
  4. THALIDOMIDE (THALIDOMIDE) [Concomitant]
  5. VELCADE [Concomitant]
  6. XYLOCAINE [Concomitant]

REACTIONS (4)
  - BONE DEBRIDEMENT [None]
  - GINGIVITIS [None]
  - OSTEONECROSIS [None]
  - TOOTH EXTRACTION [None]
